FAERS Safety Report 7884383-6 (Version None)
Quarter: 2011Q4

REPORT INFORMATION
  Report Type: 
  Country: None (occurrence: None)
  Receive Date: 20111102
  Receipt Date: 20111028
  Transmission Date: 20120403
  Serious: Yes (Other)
  Sender: FDA-Public Use
  Company Number: US-ROCHE-1008264

PATIENT

DRUGS (2)
  1. RITUXIMAB [Suspect]
     Indication: PRODUCT USED FOR UNKNOWN INDICATION
  2. VELCADE [Concomitant]

REACTIONS (2)
  - DEHYDRATION [None]
  - PYREXIA [None]
